FAERS Safety Report 17744376 (Version 1)
Quarter: 2020Q2

REPORT INFORMATION
  Report Type: Spontaneous
  Country: US (occurrence: US)
  Receive Date: 20200504
  Receipt Date: 20200504
  Transmission Date: 20200714
  Serious: No
  Sender: FDA-Public Use
  Company Number: None

PATIENT
  Sex: Male

DRUGS (8)
  1. SPIRONOLACT [Concomitant]
     Active Substance: SPIRONOLACTONE
  2. ZINC. [Concomitant]
     Active Substance: ZINC
  3. GUAIFENESIN. [Concomitant]
     Active Substance: GUAIFENESIN
  4. URSODIOL. [Concomitant]
     Active Substance: URSODIOL
  5. IRON [Concomitant]
     Active Substance: IRON
  6. ENSURE [Concomitant]
     Active Substance: AMINO ACIDS\DEXTROSE\ELECTROLYTES NOS\SOYBEAN OIL\VITAMINS
  7. FUROSEMIDE. [Concomitant]
     Active Substance: FUROSEMIDE
  8. OCALIVA [Suspect]
     Active Substance: OBETICHOLIC ACID
     Indication: PRIMARY BILIARY CHOLANGITIS
     Route: 048
     Dates: start: 20200415

REACTIONS (1)
  - Pruritus [None]
